FAERS Safety Report 13284611 (Version 2)
Quarter: 2017Q1

REPORT INFORMATION
  Report Type: Spontaneous
  Country: BE (occurrence: BE)
  Receive Date: 20170301
  Receipt Date: 20170324
  Transmission Date: 20170428
  Serious: Yes (Life-Threatening, Hospitalization, Other)
  Sender: FDA-Public Use
  Company Number: BE-PFIZER INC-2017089488

PATIENT
  Age: 35 Year
  Sex: Female
  Weight: 75.3 kg

DRUGS (3)
  1. SALAZOPYRINE [Suspect]
     Active Substance: SULFASALAZINE
     Indication: RHEUMATOID ARTHRITIS
     Dosage: 500 MG, 2X/DAY
     Dates: start: 20161223, end: 20170105
  2. SALAZOPYRINE [Suspect]
     Active Substance: SULFASALAZINE
     Dosage: UNK
     Dates: start: 20170104
  3. MEDROL [Concomitant]
     Active Substance: METHYLPREDNISOLONE
     Indication: ARTHRALGIA
     Dosage: UNK
     Route: 048
     Dates: start: 20161015

REACTIONS (16)
  - Acute kidney injury [Recovered/Resolved]
  - Drug reaction with eosinophilia and systemic symptoms [Recovered/Resolved]
  - Chills [Recovered/Resolved]
  - Arthralgia [Recovered/Resolved]
  - Thrombocytopenia [Recovered/Resolved]
  - Lung disorder [Recovered/Resolved]
  - Juvenile idiopathic arthritis [Recovered/Resolved]
  - Hypotension [Recovered/Resolved]
  - Distributive shock [Recovered/Resolved]
  - Toxic skin eruption [Recovered/Resolved]
  - Drug hypersensitivity [Recovered/Resolved]
  - Normochromic normocytic anaemia [Recovered/Resolved]
  - Body temperature abnormal [Recovered/Resolved]
  - Interstitial lung disease [Not Recovered/Not Resolved]
  - Coagulopathy [Recovered/Resolved]
  - Lactic acidosis [Recovered/Resolved]

NARRATIVE: CASE EVENT DATE: 20161231
